FAERS Safety Report 22587688 (Version 7)
Quarter: 2025Q3

REPORT INFORMATION
  Report Type: Spontaneous
  Country: EU (occurrence: EU)
  Receive Date: 20230612
  Receipt Date: 20250722
  Transmission Date: 20251021
  Serious: Yes (Hospitalization, Other)
  Sender: AUROBINDO
  Company Number: EU-AUROBINDO-AUR-APL-2023-041438

PATIENT
  Age: 56 Year
  Sex: Male

DRUGS (1)
  1. OMEPRAZOLE [Suspect]
     Active Substance: OMEPRAZOLE
     Indication: Gastrooesophageal reflux disease
     Dosage: 20 MILLIGRAM, ONCE A DAY
     Route: 065

REACTIONS (15)
  - Gastroenteritis salmonella [Recovered/Resolved]
  - Salmonellosis [Recovering/Resolving]
  - Acute kidney injury [Recovered/Resolved]
  - Rhabdomyolysis [Recovering/Resolving]
  - Polycythaemia [Recovering/Resolving]
  - Inflammatory marker increased [Recovered/Resolved]
  - Dehydration [Recovered/Resolved]
  - Oliguria [Recovered/Resolved]
  - Abdominal pain [Recovering/Resolving]
  - Diarrhoea [Recovering/Resolving]
  - Food intolerance [Recovering/Resolving]
  - Infection susceptibility increased [Recovering/Resolving]
  - Nausea [Recovering/Resolving]
  - Vomiting [Recovering/Resolving]
  - Salmonella test positive [Unknown]
